FAERS Safety Report 21049564 (Version 1)
Quarter: 2022Q3

REPORT INFORMATION
  Report Type: Spontaneous
  Country: ES (occurrence: ES)
  Receive Date: 20220706
  Receipt Date: 20220706
  Transmission Date: 20221026
  Serious: No
  Sender: FDA-Public Use
  Company Number: None

PATIENT
  Age: 79 Year
  Sex: Female

DRUGS (6)
  1. PAXLOVID [Suspect]
     Active Substance: NIRMATRELVIR\RITONAVIR
     Dosage: 3-0-3
     Route: 048
     Dates: start: 20220608, end: 20220609
  2. LYRICA [Concomitant]
     Active Substance: PREGABALIN
     Dosage: 1-0-3
     Route: 048
     Dates: start: 20140117
  3. HIDROFEROL CHOQUE [Concomitant]
     Dosage: 1 EVERY 15 DAYS
     Route: 048
     Dates: start: 20190319
  4. LORAZEPAM KERN PHARMA [Concomitant]
     Dosage: 0-0-1
     Route: 048
     Dates: start: 20220207
  5. PARACETAMOL KERN PHARMA [Concomitant]
     Dosage: 1-1-1, AS NEEDED
     Route: 048
     Dates: start: 20200117
  6. AMILORIDE HYDROCHLORIDE\HYDROCHLOROTHIAZIDE [Concomitant]
     Active Substance: AMILORIDE HYDROCHLORIDE\HYDROCHLOROTHIAZIDE
     Dosage: 1-0-0
     Route: 048
     Dates: start: 20150618

REACTIONS (4)
  - Abdominal pain upper [Recovered/Resolved]
  - Nausea [Recovered/Resolved]
  - Diarrhoea [Recovered/Resolved]
  - Product dose omission issue [Unknown]

NARRATIVE: CASE EVENT DATE: 20220609
